FAERS Safety Report 20097877 (Version 1)
Quarter: 2021Q4

REPORT INFORMATION
  Report Type: Spontaneous
  Country: GR (occurrence: GR)
  Receive Date: 20211122
  Receipt Date: 20211122
  Transmission Date: 20220303
  Serious: Yes (Other)
  Sender: FDA-Public Use
  Company Number: None

PATIENT
  Age: 10 Month
  Sex: Female

DRUGS (4)
  1. ATROPINE SULFATE [Suspect]
     Active Substance: ATROPINE SULFATE
     Indication: Ocular hypertension
     Dosage: UNK
     Route: 047
  2. DORZOLAMIDE AND TIMOLOL [Suspect]
     Active Substance: DORZOLAMIDE HYDROCHLORIDE\TIMOLOL MALEATE
     Indication: Ocular hypertension
     Dosage: UNK
     Route: 061
  3. ACETAZOLAMIDE [Suspect]
     Active Substance: ACETAZOLAMIDE
     Indication: Ocular hypertension
     Dosage: 10 MG/KG
     Route: 048
  4. DEXAMETHASONE [Suspect]
     Active Substance: DEXAMETHASONE
     Indication: Ocular hypertension
     Route: 061

REACTIONS (3)
  - Hyphaema [Recovered/Resolved with Sequelae]
  - Condition aggravated [Recovered/Resolved with Sequelae]
  - Off label use [Unknown]
